FAERS Safety Report 9221040 (Version 1)
Quarter: 2013Q2

REPORT INFORMATION
  Report Type: Spontaneous
  Country: US (occurrence: US)
  Receive Date: 20130409
  Receipt Date: 20130409
  Transmission Date: 20140414
  Serious: Yes (Other)
  Sender: FDA-Public Use
  Company Number: US-US-EMD SERONO, INC.-230162J10USA

PATIENT
  Age: 40 Year
  Sex: Female
  Weight: 115 kg

DRUGS (4)
  1. REBIF [Suspect]
     Indication: MULTIPLE SCLEROSIS
     Dates: start: 2007
  2. REBIF [Suspect]
     Route: 058
     Dates: start: 20091229
  3. REBIF [Suspect]
     Route: 058
     Dates: start: 20121113
  4. CELEXA                             /00582602/ [Concomitant]
     Indication: PRODUCT USED FOR UNKNOWN INDICATION

REACTIONS (3)
  - Diabetes mellitus [Unknown]
  - Injection site erythema [Unknown]
  - Injection site pain [Unknown]
